FAERS Safety Report 7712508-1 (Version None)
Quarter: 2011Q3

REPORT INFORMATION
  Report Type: 
  Country: None (occurrence: None)
  Receive Date: 20110826
  Receipt Date: 20110816
  Transmission Date: 20111222
  Serious: Yes (Other)
  Sender: FDA-Public Use
  Company Number: US-ELI_LILLY_AND_COMPANY-US201107003514

PATIENT
  Sex: Female

DRUGS (7)
  1. RANITIDINE [Concomitant]
     Dosage: UNK
  2. PROVIGIL [Concomitant]
     Dosage: UNK
  3. CYMBALTA [Suspect]
     Indication: DEPRESSION
     Dosage: 60 MG, QD
     Route: 048
     Dates: start: 20100325
  4. CYMBALTA [Suspect]
     Dosage: 60 MG, QD
     Route: 048
     Dates: end: 20110707
  5. FISH OIL [Concomitant]
     Dosage: UNK
  6. CYMBALTA [Suspect]
     Dosage: 60 MG, QOD
     Route: 048
  7. WELLBUTRIN [Concomitant]
     Dosage: UNK

REACTIONS (3)
  - DERMATITIS BULLOUS [None]
  - DIZZINESS [None]
  - PRURITUS [None]
